FAERS Safety Report 4698907-3 (Version None)
Quarter: 2005Q2

REPORT INFORMATION
  Report Type: 
  Country: None (occurrence: None)
  Receive Date: 20050622
  Receipt Date: 20050622
  Transmission Date: 20051028
  Serious: Yes (Other)
  Sender: FDA-Public Use
  Company Number: None

PATIENT
  Age: 57 Year
  Sex: Male
  Weight: 83.9 kg

DRUGS (1)
  1. REMICADE [Suspect]

REACTIONS (3)
  - CARDIAC FAILURE CONGESTIVE [None]
  - HYPERTENSION [None]
  - PARAESTHESIA [None]
